FAERS Safety Report 7639576-X (Version None)
Quarter: 2011Q3

REPORT INFORMATION
  Report Type: 
  Country: None (occurrence: None)
  Receive Date: 20110722
  Receipt Date: 20110706
  Transmission Date: 20111222
  Serious: Yes (Death, Life-Threatening, Hospitalization)
  Sender: FDA-Public Use
  Company Number: 2011MA007720

PATIENT
  Age: 58 Year
  Sex: Male

DRUGS (3)
  1. NAPROXEN [Suspect]
     Indication: OSTEOARTHRITIS
  2. LITHIUM CARBONATE [Concomitant]
  3. OLANZAPINE [Concomitant]

REACTIONS (17)
  - PURPURA [None]
  - ULCER [None]
  - HAEMATEMESIS [None]
  - BURNING SENSATION [None]
  - RED BLOOD CELL SEDIMENTATION RATE INCREASED [None]
  - PNEUMONIA [None]
  - PRURITUS [None]
  - DUODENAL ULCER [None]
  - RESPIRATORY FAILURE [None]
  - ARTHRALGIA [None]
  - VASCULITIS NECROTISING [None]
  - LEUKOCYTOCLASTIC VASCULITIS [None]
  - HYPOALBUMINAEMIA [None]
  - PAPULE [None]
  - GASTROINTESTINAL HAEMORRHAGE [None]
  - BLOOD BLISTER [None]
  - OEDEMA PERIPHERAL [None]
